FAERS Safety Report 8413477-1 (Version None)
Quarter: 2012Q2

REPORT INFORMATION
  Report Type: 
  Country: None (occurrence: None)
  Receive Date: 20120605
  Receipt Date: 20120525
  Transmission Date: 20120825
  Serious: Yes (Other)
  Sender: FDA-Public Use
  Company Number: CA-JNJFOC-20120519551

PATIENT
  Sex: Female
  Weight: 68 kg

DRUGS (5)
  1. AVIANE-28 [Concomitant]
     Route: 065
  2. ASACOL [Concomitant]
     Route: 065
  3. MESALAMINE [Concomitant]
     Route: 065
  4. REMICADE [Suspect]
     Indication: COLITIS ULCERATIVE
     Route: 042
     Dates: start: 20100901
  5. IMURAN [Concomitant]
     Route: 065

REACTIONS (2)
  - RECTAL HAEMORRHAGE [None]
  - HAEMATOCHEZIA [None]
